FAERS Safety Report 11147006 (Version 1)
Quarter: 2015Q2

REPORT INFORMATION
  Report Type: Spontaneous
  Country: US (occurrence: US)
  Receive Date: 20150528
  Receipt Date: 20150528
  Transmission Date: 20150821
  Serious: No
  Sender: FDA-Public Use
  Company Number: US-PURDUE-USA-2014-0115219

PATIENT
  Age: 69 Year
  Sex: Male

DRUGS (2)
  1. EX-LAX                             /00142201/ [Concomitant]
     Indication: CONSTIPATION
     Dosage: 3 TABLET, UNK
     Route: 048
     Dates: start: 20140529
  2. MS CONTIN [Suspect]
     Active Substance: MORPHINE SULFATE
     Indication: PRODUCT USED FOR UNKNOWN INDICATION
     Route: 048

REACTIONS (1)
  - Constipation [Not Recovered/Not Resolved]

NARRATIVE: CASE EVENT DATE: 20140604
